FAERS Safety Report 4789144-2 (Version None)
Quarter: 2005Q4

REPORT INFORMATION
  Report Type: 
  Country: None (occurrence: None)
  Receive Date: 20051005
  Receipt Date: 20050926
  Transmission Date: 20060501
  Serious: Yes (Hospitalization)
  Sender: FDA-Public Use
  Company Number: FR-MERCK-0509FRA00073

PATIENT
  Age: 85 Year
  Sex: Male

DRUGS (1)
  1. ZETIA [Suspect]
     Indication: HYPERCHOLESTEROLAEMIA
     Route: 048
     Dates: start: 20050601, end: 20050829

REACTIONS (4)
  - DIARRHOEA [None]
  - ERYSIPELAS [None]
  - FASCIITIS [None]
  - MYOSITIS-LIKE SYNDROME [None]
